FAERS Safety Report 23222924 (Version 2)
Quarter: 2023Q4

REPORT INFORMATION
  Report Type: Spontaneous
  Country: CN (occurrence: CN)
  Receive Date: 20231123
  Receipt Date: 20231127
  Transmission Date: 20240110
  Serious: Yes (Other)
  Sender: FDA-Public Use
  Company Number: CN-002147023-NVSC2023CN245533

PATIENT
  Age: 71 Year
  Sex: Female
  Weight: 75 kg

DRUGS (29)
  1. ACLASTA [Suspect]
     Active Substance: ZOLEDRONIC ACID
     Indication: Resorption bone increased
     Dosage: 5 MG, Q12MO (1 TIME)
     Route: 041
     Dates: start: 20230612, end: 20230612
  2. ISOSORBIDE MONONITRATE [Concomitant]
     Active Substance: ISOSORBIDE MONONITRATE
     Indication: Symptomatic treatment
     Dosage: 60 MG, QD, (FORMULATION: BODY TEMPERATURE AT 38.3? AT 12:20, 38.7? AT 16:20, 38.3? AT 20:00, 38.9 AT
     Route: 048
  3. ISOSORBIDE MONONITRATE [Concomitant]
     Active Substance: ISOSORBIDE MONONITRATE
     Dosage: UNK, STRENGTH: 10 MG
     Route: 065
  4. ISOSORBIDE MONONITRATE [Concomitant]
     Active Substance: ISOSORBIDE MONONITRATE
     Dosage: UNK, STRENGTH: 20 MG
     Route: 065
  5. ISOSORBIDE MONONITRATE [Concomitant]
     Active Substance: ISOSORBIDE MONONITRATE
     Dosage: UNK, STRENGTH: 40 MG
     Route: 065
  6. ISOSORBIDE MONONITRATE [Concomitant]
     Active Substance: ISOSORBIDE MONONITRATE
     Dosage: UNK, STRENGTH: 5 MG
     Route: 065
  7. ISOSORBIDE MONONITRATE [Concomitant]
     Active Substance: ISOSORBIDE MONONITRATE
     Dosage: UNK, STRENGTH: 50 MG
     Route: 065
  8. ISOSORBIDE MONONITRATE [Concomitant]
     Active Substance: ISOSORBIDE MONONITRATE
     Dosage: UNK, STRENGTH: 60 MG
     Route: 065
  9. LORNOXICAM [Concomitant]
     Active Substance: LORNOXICAM
     Indication: Analgesic therapy
     Dosage: 8 MG, QD
     Route: 041
     Dates: start: 20230604, end: 20230613
  10. LORNOXICAM [Concomitant]
     Active Substance: LORNOXICAM
     Dosage: UNK, STRENGTH: 4 MG
     Route: 065
  11. VITAMIN C [Concomitant]
     Active Substance: ASCORBIC ACID
     Indication: Nervous system disorder prophylaxis
     Dosage: 2 G, QD
     Route: 041
     Dates: start: 20230602, end: 20230613
  12. VITAMIN C [Concomitant]
     Active Substance: ASCORBIC ACID
     Dosage: UNK, STRENGTH: 0.1 MG
     Route: 065
  13. VITAMIN C [Concomitant]
     Active Substance: ASCORBIC ACID
     Dosage: UNK, STRENGTH: 1 G
     Route: 065
  14. VITAMIN C [Concomitant]
     Active Substance: ASCORBIC ACID
     Dosage: UNK, STRENGTH: 100 MG
     Route: 065
  15. VITAMIN C [Concomitant]
     Active Substance: ASCORBIC ACID
     Dosage: UNK, STRENGTH: 2 G
     Route: 065
  16. VITAMIN C [Concomitant]
     Active Substance: ASCORBIC ACID
     Dosage: UNK, STRENGTH: 20 MG
     Route: 065
  17. VITAMIN C [Concomitant]
     Active Substance: ASCORBIC ACID
     Dosage: UNK, STRENGTH: 200 MG
     Route: 065
  18. VITAMIN C [Concomitant]
     Active Substance: ASCORBIC ACID
     Dosage: UNK, STRENGTH: 2000 MG
     Route: 065
  19. VITAMIN C [Concomitant]
     Active Substance: ASCORBIC ACID
     Dosage: UNK, STRENGTH: 25 MG
     Route: 065
  20. VITAMIN C [Concomitant]
     Active Substance: ASCORBIC ACID
     Dosage: UNK, STRENGTH: 250 MG
     Route: 065
  21. VITAMIN C [Concomitant]
     Active Substance: ASCORBIC ACID
     Dosage: UNK, STRENGTH: 250 MG/ML
     Route: 065
  22. VITAMIN C [Concomitant]
     Active Substance: ASCORBIC ACID
     Dosage: UNK, STRENGTH: 50 MG
     Route: 065
  23. VITAMIN C [Concomitant]
     Active Substance: ASCORBIC ACID
     Dosage: UNK, STRENGTH: 500 MG
     Route: 065
  24. VITAMIN C [Concomitant]
     Active Substance: ASCORBIC ACID
     Dosage: UNK, STRENGTH: 500 MG/ML
     Route: 065
  25. VITAMIN B6 [Concomitant]
     Active Substance: PYRIDOXINE HYDROCHLORIDE
     Indication: Nervous system disorder prophylaxis
     Dosage: 0.1 G, QD
     Route: 041
     Dates: start: 20230602, end: 20230613
  26. VITAMIN B6 [Concomitant]
     Active Substance: PYRIDOXINE HYDROCHLORIDE
     Dosage: UNK, STRENGTH: 1.2 %
     Route: 065
  27. VITAMIN B6 [Concomitant]
     Active Substance: PYRIDOXINE HYDROCHLORIDE
     Dosage: UNK, STRENGTH: 10 MG
     Route: 065
  28. VITAMIN B6 [Concomitant]
     Active Substance: PYRIDOXINE HYDROCHLORIDE
     Dosage: UNK, STRENGTH: 25 MG/ML
     Route: 065
  29. VITAMIN B6 [Concomitant]
     Active Substance: PYRIDOXINE HYDROCHLORIDE
     Dosage: UNK, STRENGTH: 50 MG/ML
     Route: 065

REACTIONS (5)
  - Myocardial ischaemia [Recovering/Resolving]
  - Chest discomfort [Recovering/Resolving]
  - Body temperature increased [Recovering/Resolving]
  - Dyspnoea [Recovering/Resolving]
  - Asthenia [Unknown]

NARRATIVE: CASE EVENT DATE: 20230613
